FAERS Safety Report 20079257 (Version 5)
Quarter: 2022Q1

REPORT INFORMATION
  Report Type: Report from Study
  Country: US (occurrence: US)
  Receive Date: 20211117
  Receipt Date: 20220322
  Transmission Date: 20220423
  Serious: Yes (Hospitalization)
  Sender: FDA-Public Use
  Company Number: US-TAKEDA-2021TUS069766

PATIENT
  Age: 47 Year
  Sex: Male

DRUGS (12)
  1. TEDUGLUTIDE [Suspect]
     Active Substance: TEDUGLUTIDE
     Indication: Crohn^s disease
     Dosage: 3.8 MILLIGRAM, QD
     Route: 058
     Dates: start: 20210812
  2. TEDUGLUTIDE [Suspect]
     Active Substance: TEDUGLUTIDE
     Indication: Crohn^s disease
     Dosage: 3.8 MILLIGRAM, QD
     Route: 058
     Dates: start: 20210812
  3. TEDUGLUTIDE [Suspect]
     Active Substance: TEDUGLUTIDE
     Indication: Crohn^s disease
     Dosage: 3.8 MILLIGRAM, QD
     Route: 058
     Dates: start: 20210812
  4. TEDUGLUTIDE [Suspect]
     Active Substance: TEDUGLUTIDE
     Indication: Crohn^s disease
     Dosage: 3.8 MILLIGRAM, QD
     Route: 058
     Dates: start: 20210812
  5. TEDUGLUTIDE [Suspect]
     Active Substance: TEDUGLUTIDE
     Indication: Malabsorption
     Dosage: 3.8 MILLIGRAM, QD
     Route: 058
     Dates: start: 202108
  6. TEDUGLUTIDE [Suspect]
     Active Substance: TEDUGLUTIDE
     Indication: Malabsorption
     Dosage: 3.8 MILLIGRAM, QD
     Route: 058
     Dates: start: 202108
  7. TEDUGLUTIDE [Suspect]
     Active Substance: TEDUGLUTIDE
     Indication: Malabsorption
     Dosage: 3.8 MILLIGRAM, QD
     Route: 058
     Dates: start: 202108
  8. TEDUGLUTIDE [Suspect]
     Active Substance: TEDUGLUTIDE
     Indication: Malabsorption
     Dosage: 3.8 MILLIGRAM, QD
     Route: 058
     Dates: start: 202108
  9. TEDUGLUTIDE [Suspect]
     Active Substance: TEDUGLUTIDE
     Indication: Inflammatory bowel disease
     Dosage: 3.8 MILLIGRAM, QD
     Route: 058
     Dates: start: 20210920
  10. TEDUGLUTIDE [Suspect]
     Active Substance: TEDUGLUTIDE
     Indication: Inflammatory bowel disease
     Dosage: 3.8 MILLIGRAM, QD
     Route: 058
     Dates: start: 20210920
  11. TEDUGLUTIDE [Suspect]
     Active Substance: TEDUGLUTIDE
     Indication: Inflammatory bowel disease
     Dosage: 3.8 MILLIGRAM, QD
     Route: 058
     Dates: start: 20210920
  12. TEDUGLUTIDE [Suspect]
     Active Substance: TEDUGLUTIDE
     Indication: Inflammatory bowel disease
     Dosage: 3.8 MILLIGRAM, QD
     Route: 058
     Dates: start: 20210920

REACTIONS (6)
  - Hospitalisation [Unknown]
  - Central venous catheterisation [Unknown]
  - Arthropathy [Unknown]
  - Colostomy [Unknown]
  - Haemoglobin decreased [Unknown]
  - Syringe issue [Unknown]

NARRATIVE: CASE EVENT DATE: 20211107
